FAERS Safety Report 4893045-9 (Version None)
Quarter: 2005Q4

REPORT INFORMATION
  Report Type: 
  Country: None (occurrence: None)
  Receive Date: 20051220
  Receipt Date: 20050907
  Transmission Date: 20060501
  Serious: Yes (Other)
  Sender: FDA-Public Use
  Company Number: 417067

PATIENT
  Sex: Female

DRUGS (1)
  1. BONIVA [Suspect]
     Dosage: 150 MG 1 PER MONTH

REACTIONS (4)
  - ABDOMINAL PAIN [None]
  - BACK PAIN [None]
  - BLOOD BILIRUBIN INCREASED [None]
  - PAIN IN EXTREMITY [None]
